FAERS Safety Report 21770649 (Version 1)
Quarter: 2022Q4

REPORT INFORMATION
  Report Type: Report from Study
  Country: CO (occurrence: CO)
  Receive Date: 20221223
  Receipt Date: 20221223
  Transmission Date: 20230113
  Serious: Yes (Other)
  Sender: FDA-Public Use
  Company Number: CO-ABBVIE-4239756

PATIENT
  Sex: Male
  Weight: 91 kg

DRUGS (3)
  1. HUMIRA [Suspect]
     Active Substance: ADALIMUMAB
     Indication: Psoriasis
     Route: 058
  2. HUMIRA [Suspect]
     Active Substance: ADALIMUMAB
  3. VALSARTAN [Concomitant]
     Active Substance: VALSARTAN
     Indication: Hypertension
     Dosage: 40 MILLIGRAM
     Route: 048

REACTIONS (8)
  - Cataract [Not Recovered/Not Resolved]
  - Supraventricular extrasystoles [Recovering/Resolving]
  - Heart rate abnormal [Recovering/Resolving]
  - Cardiac disorder [Recovering/Resolving]
  - Blood pressure increased [Not Recovered/Not Resolved]
  - Atrioventricular block [Recovering/Resolving]
  - Atrioventricular block second degree [Recovering/Resolving]
  - Paroxysmal atrioventricular block [Recovering/Resolving]

NARRATIVE: CASE EVENT DATE: 20190101
